FAERS Safety Report 24961385 (Version 1)
Quarter: 2025Q1

REPORT INFORMATION
  Report Type: Report from Study
  Country: US (occurrence: US)
  Receive Date: 20250212
  Receipt Date: 20250212
  Transmission Date: 20250409
  Serious: Yes (Other)
  Sender: TAKEDA
  Company Number: US-TAKEDA-2025TUS013054

PATIENT
  Sex: Male

DRUGS (3)
  1. VEDOLIZUMAB [Suspect]
     Active Substance: VEDOLIZUMAB
     Indication: Product used for unknown indication
  2. VEDOLIZUMAB [Suspect]
     Active Substance: VEDOLIZUMAB
     Indication: Product used for unknown indication
     Dosage: 108 MILLIGRAM, Q2WEEKS
  3. VEDOLIZUMAB [Suspect]
     Active Substance: VEDOLIZUMAB

REACTIONS (11)
  - Haematochezia [Unknown]
  - Colitis ulcerative [Unknown]
  - Diverticulitis [Unknown]
  - Prostate cancer [Unknown]
  - Glaucoma [Unknown]
  - Off label use [Unknown]
  - Gout [Unknown]
  - Large intestine polyp [Unknown]
  - Sleep apnoea syndrome [Unknown]
  - Abdominal pain lower [Unknown]
  - Diverticulum intestinal [Unknown]
